FAERS Safety Report 11349370 (Version 1)
Quarter: 2015Q3

REPORT INFORMATION
  Report Type: Spontaneous
  Country: JP (occurrence: None)
  Receive Date: 20150805
  Receipt Date: 20150805
  Transmission Date: 20151125
  Serious: Yes (Hospitalization)
  Sender: FDA-Public Use
  Company Number: 2015JUB00240

PATIENT
  Age: 61 Year
  Sex: Female

DRUGS (5)
  1. PEGYLATED INTERFERON ALPHA-2A (PEGYLATED INTERFERON ALPHA-2A) UNKNOWN [Concomitant]
  2. MYCOPHENOLATE MOFETIL (MYCOPHENOLATE MOFETIL) UNKNOWN [Suspect]
     Active Substance: MYCOPHENOLATE MOFETIL
     Indication: PROPHYLAXIS AGAINST TRANSPLANT REJECTION
     Dosage: 1500 MG, 1X/DAY, UNKNOWN
  3. RIBAVIRIN (RIBAVIRIN) UNKNOWN, UNKNOWN [Suspect]
     Active Substance: RIBAVIRIN
     Dosage: 800 MG , 1X/DAY, UNKNOWN
  4. TACROLIMUS (TACROLIMUS) [Concomitant]
     Active Substance: TACROLIMUS
  5. SIMEPRIVIR (SIMEPRIVIR) UNKNOWN [Concomitant]

REACTIONS (2)
  - Drug interaction [None]
  - Haemolytic anaemia [None]
